FAERS Safety Report 5283465-5 (Version None)
Quarter: 2007Q2

REPORT INFORMATION
  Report Type: 
  Country: None (occurrence: None)
  Receive Date: 20070402
  Receipt Date: 20070323
  Transmission Date: 20071010
  Serious: Yes (Other)
  Sender: FDA-Public Use
  Company Number: JP-MERCK-0703USA05193

PATIENT

DRUGS (2)
  1. DECADRON [Suspect]
     Route: 048
  2. PACLITAXEL [Suspect]
     Route: 042

REACTIONS (1)
  - SHOCK [None]
